FAERS Safety Report 5040675-X (Version None)
Quarter: 2006Q2

REPORT INFORMATION
  Report Type: 
  Country: None (occurrence: None)
  Receive Date: 20060629
  Receipt Date: 20060629
  Transmission Date: 20061013
  Serious: Yes (Life-Threatening)
  Sender: FDA-Public Use
  Company Number: None

PATIENT
  Age: 79 Year
  Sex: Male
  Weight: 70 kg

DRUGS (3)
  1. AVASTIN [Suspect]
     Dosage: 7.5 MG Q 3 WKS
  2. XELODA [Suspect]
     Dosage: 1000 MG BID - 1300 BID
     Dates: start: 20060307
  3. XELODA [Suspect]
     Dosage: 1000 MG BID - 1300 BID
     Dates: start: 20060328

REACTIONS (7)
  - DEHYDRATION [None]
  - GASTROENTERITIS [None]
  - GASTROINTESTINAL HAEMORRHAGE [None]
  - HYPOTENSION [None]
  - HYPOTHERMIA [None]
  - OESOPHAGITIS [None]
  - RENAL FAILURE ACUTE [None]
